FAERS Safety Report 9063056 (Version 4)
Quarter: 2013Q2

REPORT INFORMATION
  Report Type: Spontaneous
  Country: DE (occurrence: DE)
  Receive Date: 20130213
  Receipt Date: 20130404
  Transmission Date: 20140414
  Serious: Yes (Other)
  Sender: FDA-Public Use
  Company Number: DE-JNJFOC-20130117099

PATIENT
  Sex: Male

DRUGS (2)
  1. ZYTIGA [Suspect]
     Indication: PROSTATE CANCER METASTATIC
     Route: 048
  2. PREDNISOLONE [Suspect]
     Indication: PRODUCT USED FOR UNKNOWN INDICATION
     Route: 065

REACTIONS (8)
  - Dyspnoea [Unknown]
  - Gamma-glutamyltransferase increased [Unknown]
  - Blood lactate dehydrogenase increased [Unknown]
  - Aspartate aminotransferase increased [Unknown]
  - Feeling abnormal [Unknown]
  - Myalgia [Unknown]
  - Muscular weakness [Unknown]
  - Fatigue [Unknown]
